FAERS Safety Report 18973808 (Version 1)
Quarter: 2021Q1

REPORT INFORMATION
  Report Type: Spontaneous
  Country: US (occurrence: US)
  Receive Date: 20210305
  Receipt Date: 20210305
  Transmission Date: 20210420
  Serious: No
  Sender: FDA-Public Use
  Company Number: US-CELGENEUS-USA-20210206192

PATIENT
  Sex: Male

DRUGS (2)
  1. REVLIMID [Suspect]
     Active Substance: LENALIDOMIDE
     Indication: OFF LABEL USE
     Dosage: 20 MILLIGRAM
     Route: 048
     Dates: start: 202012, end: 20210106
  2. REVLIMID [Suspect]
     Active Substance: LENALIDOMIDE
     Indication: PERIPHERAL T-CELL LYMPHOMA UNSPECIFIED
     Dosage: 25 MILLIGRAM
     Route: 048
     Dates: start: 201908

REACTIONS (2)
  - Peripheral T-cell lymphoma unspecified [Unknown]
  - Drug tolerance [Unknown]
